FAERS Safety Report 23661355 (Version 1)
Quarter: 2024Q1

REPORT INFORMATION
  Report Type: Spontaneous
  Country: RU (occurrence: RU)
  Receive Date: 20240322
  Receipt Date: 20240322
  Transmission Date: 20240409
  Serious: Yes (Hospitalization, Other)
  Sender: FDA-Public Use
  Company Number: RU-Merz Pharmaceuticals GmbH-24-00936

PATIENT
  Age: 13 Year
  Sex: Female
  Weight: 35.5 kg

DRUGS (5)
  1. XEOMIN [Suspect]
     Active Substance: INCOBOTULINUMTOXINA
     Indication: Salivary hypersecretion
     Dates: start: 20240228, end: 20240228
  2. VALPROIC ACID [Concomitant]
     Active Substance: VALPROIC ACID
     Indication: Galactosialidosis
     Dosage: 300 MG
     Dates: start: 201709
  3. ETHOSUXIMIDE [Concomitant]
     Active Substance: ETHOSUXIMIDE
     Indication: Galactosialidosis
     Dosage: 500 MG
     Dates: start: 201709
  4. PIASCLEDINE 300 [Concomitant]
     Indication: Osteoarthritis
     Dosage: 400 MG
     Dates: start: 202204
  5. FRAGMIN [Concomitant]
     Active Substance: DALTEPARIN SODIUM
     Indication: Venous thrombosis
     Dosage: 260 UNITS/KG
     Dates: start: 20240226, end: 20240312

REACTIONS (2)
  - Choking [Recovering/Resolving]
  - Dysphagia [Recovering/Resolving]

NARRATIVE: CASE EVENT DATE: 20240229
